FAERS Safety Report 7494461-1 (Version None)
Quarter: 2011Q2

REPORT INFORMATION
  Report Type: 
  Country: None (occurrence: None)
  Receive Date: 20110520
  Receipt Date: 20110509
  Transmission Date: 20111010
  Serious: Yes (Hospitalization, Other)
  Sender: FDA-Public Use
  Company Number: US-CELGENEUS-163-21880-11051169

PATIENT
  Sex: Male

DRUGS (5)
  1. ASPIRIN [Concomitant]
     Dosage: 325 MILLIGRAM
     Route: 048
  2. ATENOLOL [Concomitant]
     Dosage: 25 MILLIGRAM
     Route: 048
  3. POTASSIUM [Concomitant]
     Dosage: 75 MILLIGRAM
     Route: 048
  4. REVLIMID [Suspect]
     Indication: MULTIPLE MYELOMA
     Dosage: 25 MILLIGRAM
     Route: 048
     Dates: start: 20081101
  5. COUMADIN [Concomitant]
     Dosage: 1 MILLIGRAM
     Route: 048

REACTIONS (2)
  - CARDIAC FLUTTER [None]
  - PNEUMONIA [None]
